FAERS Safety Report 7361075-3 (Version None)
Quarter: 2011Q1

REPORT INFORMATION
  Report Type: 
  Country: None (occurrence: None)
  Receive Date: 20110318
  Receipt Date: 20110113
  Transmission Date: 20110831
  Serious: No
  Sender: FDA-Public Use
  Company Number: US-BAYER-2011-004906

PATIENT
  Sex: Male
  Weight: 77 kg

DRUGS (3)
  1. ALEVE (CAPLET) [Suspect]
     Indication: ARTHRITIS
     Dosage: DAILY
     Route: 048
     Dates: start: 20110101
  2. PRILOSEC [Concomitant]
  3. BENICAR [Concomitant]

REACTIONS (1)
  - ARTHRALGIA [None]
